FAERS Safety Report 4662951-2 (Version None)
Quarter: 2005Q2

REPORT INFORMATION
  Report Type: 
  Country: None (occurrence: None)
  Receive Date: 20050511
  Receipt Date: 20050223
  Transmission Date: 20051028
  Serious: Yes (Hospitalization)
  Sender: FDA-Public Use
  Company Number: 396737

PATIENT
  Age: 61 Year
  Sex: Male

DRUGS (2)
  1. PEGASYS [Suspect]
     Indication: HEPATITIS C
     Dosage: 180 MCG/ML, 1 PER 1 WEEK, OTHER
     Route: 050
     Dates: start: 20040615
  2. COPEGUS [Suspect]
     Indication: HEPATITIS C
     Dosage: 1000 MG, DAILY, ORAL
     Route: 048
     Dates: start: 20040615

REACTIONS (7)
  - ABASIA [None]
  - ABSCESS [None]
  - ASTHENIA [None]
  - BALANCE DISORDER [None]
  - MEMORY IMPAIRMENT [None]
  - RED BLOOD CELL COUNT DECREASED [None]
  - WHITE BLOOD CELL COUNT DECREASED [None]
